FAERS Safety Report 7824196-4 (Version None)
Quarter: 2011Q4

REPORT INFORMATION
  Report Type: 
  Country: None (occurrence: None)
  Receive Date: 20111019
  Receipt Date: 20111011
  Transmission Date: 20120403
  Serious: Yes (Hospitalization)
  Sender: FDA-Public Use
  Company Number: AU-ABBOTT-11P-008-0863304-00

PATIENT
  Sex: Female

DRUGS (1)
  1. HUMIRA [Suspect]
     Indication: CROHN'S DISEASE
     Dosage: FIRST DOSE
     Route: 058

REACTIONS (5)
  - TREMOR [None]
  - MUSCULOSKELETAL STIFFNESS [None]
  - NAUSEA [None]
  - DYSGEUSIA [None]
  - BLOOD PRESSURE SYSTOLIC DECREASED [None]
